FAERS Safety Report 5464327-7 (Version None)
Quarter: 2007Q3

REPORT INFORMATION
  Report Type: 
  Country: None (occurrence: None)
  Receive Date: 20070921
  Receipt Date: 20070913
  Transmission Date: 20080115
  Serious: Yes (Death)
  Sender: FDA-Public Use
  Company Number: AR-ELI_LILLY_AND_COMPANY-AR200709002759

PATIENT
  Sex: Male

DRUGS (1)
  1. BYETTA [Suspect]

REACTIONS (1)
  - DEATH [None]
